FAERS Safety Report 9206991 (Version 2)
Quarter: 2014Q1

REPORT INFORMATION
  Report Type: Spontaneous
  Country: US (occurrence: US)
  Receive Date: 20130403
  Receipt Date: 20140115
  Transmission Date: 20141002
  Serious: Yes (Other)
  Sender: FDA-Public Use
  Company Number: US-BAYER-2013-039953

PATIENT
  Age: 27 Year
  Sex: Female

DRUGS (8)
  1. YAZ [Suspect]
     Dosage: UNK
     Dates: start: 200808, end: 200902
  2. YASMIN [Suspect]
     Dosage: UNK
     Dates: start: 200808, end: 200902
  3. EFFEXOR [Concomitant]
  4. AMITRIPTYLINE [Concomitant]
  5. LISINOPRIL [Concomitant]
  6. CHANTIX [Concomitant]
  7. GLUCOPHAGE [Concomitant]
  8. HYDROCHLOROTHIAZIDE [Concomitant]

REACTIONS (8)
  - Gallbladder disorder [None]
  - Biliary dyskinesia [None]
  - Cholecystitis chronic [None]
  - Injury [None]
  - Pain [None]
  - Emotional distress [None]
  - Anxiety [None]
  - Psychological trauma [None]
